FAERS Safety Report 23017455 (Version 3)
Quarter: 2023Q4

REPORT INFORMATION
  Report Type: Spontaneous
  Country: IT (occurrence: IT)
  Receive Date: 20231003
  Receipt Date: 20231009
  Transmission Date: 20240109
  Serious: Yes (Other)
  Sender: FDA-Public Use
  Company Number: None

PATIENT
  Age: 49 Year
  Sex: Male
  Weight: 92 kg

DRUGS (1)
  1. REMICADE [Suspect]
     Active Substance: INFLIXIMAB
     Indication: Colitis ulcerative
     Dosage: IN FASE INDUZIONE MANCATA RISPOSTA AL  DOSAGGIO DI 5 MG PRO KILO
     Route: 058
     Dates: start: 20230608, end: 20230815

REACTIONS (2)
  - Haematochezia [Recovered/Resolved]
  - Drug ineffective [Recovered/Resolved]

NARRATIVE: CASE EVENT DATE: 20230810
